FAERS Safety Report 20999244 (Version 1)
Quarter: 2022Q2

REPORT INFORMATION
  Report Type: Spontaneous
  Country: PR (occurrence: None)
  Receive Date: 20220622
  Receipt Date: 20220622
  Transmission Date: 20220721
  Serious: No
  Sender: FDA-Public Use
  Company Number: None

PATIENT
  Age: 71 Year
  Sex: Male

DRUGS (2)
  1. ORENCIA [Suspect]
     Active Substance: ABATACEPT
     Dosage: OTHER FREQUENCY : SEMANAL;?
     Route: 058
     Dates: start: 20220208
  2. ORENCIA [Concomitant]
     Active Substance: ABATACEPT
     Dates: start: 20220208, end: 20220330

REACTIONS (2)
  - Subcutaneous abscess [None]
  - Ear neoplasm malignant [None]

NARRATIVE: CASE EVENT DATE: 20220622
